FAERS Safety Report 11643071 (Version 1)
Quarter: 2015Q4

REPORT INFORMATION
  Report Type: Spontaneous
  Country: US (occurrence: None)
  Receive Date: 20151016
  Receipt Date: 20151016
  Transmission Date: 20160304
  Serious: Yes (Hospitalization, Other)
  Sender: FDA-Public Use
  Company Number: US2015GSK127948

PATIENT
  Age: 60 Year
  Sex: Male

DRUGS (4)
  1. CANAGLIFLOZIN (CANAGLIFLOZIN), EHZS000 07-2015 [Suspect]
     Active Substance: CANAGLIFLOZIN
     Indication: TYPE 2 DIABETES MELLITUS
  2. METFORMIN [Concomitant]
     Active Substance: METFORMIN HYDROCHLORIDE
  3. TUMS [Suspect]
     Active Substance: CALCIUM CARBONATE
     Indication: DYSPEPSIA
     Dosage: UNK (8-10 TIMES DAILY FOR 1 WEEK), UNKNOWN
  4. GLIMEPIRIDE. [Concomitant]
     Active Substance: GLIMEPIRIDE

REACTIONS (13)
  - Blood creatinine increased [None]
  - Hypernatraemia [None]
  - Blood phosphorus decreased [None]
  - Diabetic ketoacidosis [None]
  - Blood glucose increased [None]
  - Glucose urine present [None]
  - Polyuria [None]
  - Mental status changes [None]
  - Syncope [None]
  - Blood urea increased [None]
  - Blood ketone body increased [None]
  - Hypercalcaemia [None]
  - Blood bicarbonate decreased [None]
